FAERS Safety Report 9819467 (Version 1)
Quarter: 2014Q1

REPORT INFORMATION
  Report Type: Spontaneous
  Country: US (occurrence: US)
  Receive Date: 20140115
  Receipt Date: 20140115
  Transmission Date: 20141002
  Serious: Yes (Other)
  Sender: FDA-Public Use
  Company Number: US-PFIZER INC-2014012160

PATIENT
  Age: 57 Year
  Sex: Female
  Weight: 68.03 kg

DRUGS (10)
  1. LYRICA [Suspect]
     Indication: NEUROPATHY PERIPHERAL
     Dosage: 150 MG (BY TAKING TWO CAPSULES OF 75MG), 3X/DAY
     Route: 048
  2. PLAVIX [Concomitant]
     Dosage: UNK
  3. LIPITOR [Concomitant]
     Dosage: UNK
  4. ASPIRIN [Concomitant]
     Dosage: LOW DOSE
  5. FAMOTIDINE [Concomitant]
     Dosage: UNK
  6. PREVACID [Concomitant]
     Dosage: UNK
  7. IRON [Concomitant]
     Dosage: UNK
  8. METOPROLOL [Concomitant]
     Dosage: UNK
  9. ATIVAN [Concomitant]
     Dosage: UNK
  10. VICODIN [Concomitant]
     Dosage: UNK, AS NEEDED

REACTIONS (2)
  - Myocardial infarction [Unknown]
  - Weight increased [Unknown]
